FAERS Safety Report 19905701 (Version 2)
Quarter: 2022Q2

REPORT INFORMATION
  Report Type: Spontaneous
  Country: US (occurrence: US)
  Receive Date: 20210930
  Receipt Date: 20220427
  Transmission Date: 20220721
  Serious: No
  Sender: FDA-Public Use
  Company Number: US-PFIZER INC-2020446839

PATIENT
  Age: 62 Year
  Sex: Female
  Weight: 327 kg

DRUGS (3)
  1. LYRICA [Suspect]
     Active Substance: PREGABALIN
     Indication: Lumbar radiculopathy
     Dosage: 50 MG, 1X/DAY (AT BEDTIME) X 5 DAYS]
     Route: 048
  2. LYRICA [Suspect]
     Active Substance: PREGABALIN
     Dosage: 50 MG, 2X/DAY [BID (TWICE A DAY) X 5 DAYS]
     Route: 048
  3. LYRICA [Suspect]
     Active Substance: PREGABALIN
     Dosage: 50 MG, 3X/DAY
     Route: 048

REACTIONS (4)
  - Drug ineffective [Unknown]
  - Pain [Unknown]
  - Screaming [Unknown]
  - Swelling [Unknown]
